FAERS Safety Report 8595597-4 (Version None)
Quarter: 2012Q3

REPORT INFORMATION
  Report Type: 
  Country: None (occurrence: None)
  Receive Date: 20120801
  Receipt Date: 20120716
  Transmission Date: 20120928
  Serious: Yes (Other)
  Sender: FDA-Public Use
  Company Number: 2012P1049552

PATIENT
  Age: 82 Year
  Sex: Male
  Weight: 66.2252 kg

DRUGS (9)
  1. IMIQUIMOD [Suspect]
     Indication: BASAL CELL CARCINOMA
     Dosage: NON-FRI; TOP
     Route: 061
     Dates: start: 20120430, end: 20120601
  2. DIGOXIN [Concomitant]
  3. GLUCOSAMINE CHONDROITIN [Concomitant]
  4. FISH OIL [Concomitant]
  5. PRADAXIA [Concomitant]
  6. PROPAFENONE HCL [Concomitant]
  7. RED YEAST RICE [Concomitant]
  8. ASPIRIN [Concomitant]
  9. CALCIUM + VITAMIN D [Concomitant]

REACTIONS (8)
  - GASTRIC ULCER HAEMORRHAGE [None]
  - APPLICATION SITE PRURITUS [None]
  - APPLICATION SITE PAIN [None]
  - APPLICATION SITE ERYTHEMA [None]
  - SCAB [None]
  - APPLICATION SITE DISCHARGE [None]
  - SKIN DISCOLOURATION [None]
  - PAIN [None]
